FAERS Safety Report 18242729 (Version 1)
Quarter: 2020Q3

REPORT INFORMATION
  Report Type: Spontaneous
  Country: US (occurrence: US)
  Receive Date: 20200908
  Receipt Date: 20200908
  Transmission Date: 20201103
  Serious: Yes (Hospitalization)
  Sender: FDA-Public Use
  Company Number: US-JNJFOC-A-NJ2020-208329

PATIENT
  Age: 54 Year
  Sex: Female
  Weight: 136.2 kg

DRUGS (2)
  1. SILDENAFIL CITRATE. [Concomitant]
     Active Substance: SILDENAFIL CITRATE
  2. VELETRI [Suspect]
     Active Substance: EPOPROSTENOL
     Indication: PULMONARY ARTERIAL HYPERTENSION
     Dosage: 26 NG/KG, PER MIN
     Route: 042

REACTIONS (5)
  - Device occlusion [Unknown]
  - Pulmonary hypertension [Unknown]
  - Catheter site erythema [Unknown]
  - Gout [Unknown]
  - Catheter site irritation [Unknown]
